FAERS Safety Report 18946729 (Version 3)
Quarter: 2021Q1

REPORT INFORMATION
  Report Type: Spontaneous
  Country: CZ (occurrence: CZ)
  Receive Date: 20210226
  Receipt Date: 20210322
  Transmission Date: 20210420
  Serious: Yes (Hospitalization)
  Sender: FDA-Public Use
  Company Number: CZ-009507513-2102CZE006593

PATIENT
  Age: 10 Year
  Sex: Female

DRUGS (3)
  1. POSACONAZOLE [Suspect]
     Active Substance: POSACONAZOLE
     Indication: ACUTE MYELOID LEUKAEMIA
  2. DASATINIB. [Suspect]
     Active Substance: DASATINIB
     Indication: ACUTE MYELOID LEUKAEMIA
     Dosage: UNK
  3. POSACONAZOLE [Suspect]
     Active Substance: POSACONAZOLE
     Indication: ANTIFUNGAL TREATMENT
     Dosage: ENTERIC?COATED TABLETS WITH CONTROLLED RELEASE
     Route: 048

REACTIONS (4)
  - Duodenitis [Recovered/Resolved]
  - Candida infection [Recovered/Resolved]
  - Haemorrhagic erosive gastritis [Recovered/Resolved]
  - Gastritis [Recovered/Resolved]
